FAERS Safety Report 22161412 (Version 1)
Quarter: 2023Q1

REPORT INFORMATION
  Report Type: Report from Study
  Country: CA (occurrence: CA)
  Receive Date: 20230331
  Receipt Date: 20230331
  Transmission Date: 20230417
  Serious: Yes (Death, Hospitalization, Other)
  Sender: FDA-Public Use
  Company Number: CA-TEVA-2023-CA-2870940

PATIENT
  Age: 74 Year
  Sex: Male

DRUGS (5)
  1. METFORMIN [Suspect]
     Active Substance: METFORMIN HYDROCHLORIDE
     Indication: Diabetes mellitus
     Dosage: 1000 MILLIGRAM DAILY;
     Route: 048
  2. SANDOSTATIN [Suspect]
     Active Substance: OCTREOTIDE ACETATE
     Indication: Pancreatic neuroendocrine tumour
     Dosage: 300 MICROGRAM DAILY;
     Route: 058
  3. SANDOSTATIN [Suspect]
     Active Substance: OCTREOTIDE ACETATE
     Route: 030
  4. SANDOSTATIN [Suspect]
     Active Substance: OCTREOTIDE ACETATE
     Route: 030
  5. LORAZEPAM [Concomitant]
     Active Substance: LORAZEPAM
     Indication: Product used for unknown indication
     Route: 065

REACTIONS (14)
  - Asthenia [Fatal]
  - Bradycardia [Fatal]
  - Cystitis [Fatal]
  - Diabetes mellitus [Fatal]
  - Ear infection [Fatal]
  - Ear pain [Fatal]
  - Fatigue [Fatal]
  - Influenza [Fatal]
  - Injection site haemorrhage [Fatal]
  - Mass [Fatal]
  - Pneumonia [Fatal]
  - Death [Fatal]
  - Blood pressure increased [Fatal]
  - Needle issue [Fatal]
